FAERS Safety Report 4699403-X (Version None)
Quarter: 2005Q3

REPORT INFORMATION
  Report Type: 
  Country: None (occurrence: None)
  Receive Date: 20050622
  Receipt Date: 20050610
  Transmission Date: 20060218
  Serious: Yes (Other)
  Sender: FDA-Public Use
  Company Number: 200503707

PATIENT
  Age: 30 Month
  Sex: Male
  Weight: 10 kg

DRUGS (1)
  1. BOTOX [Suspect]
     Indication: MUSCLE SPASTICITY
     Dosage: 60 IU ONCE IM
     Route: 030
     Dates: start: 20050311

REACTIONS (1)
  - SIMPLE PARTIAL SEIZURES [None]
